FAERS Safety Report 18108295 (Version 1)
Quarter: 2020Q3

REPORT INFORMATION
  Report Type: Report from Study
  Country: FR (occurrence: FR)
  Receive Date: 20200804
  Receipt Date: 20200804
  Transmission Date: 20201103
  Serious: Yes (Other)
  Sender: FDA-Public Use
  Company Number: FR-MYLANLABS-2020M1069234

PATIENT
  Age: 29 Year
  Sex: Female

DRUGS (4)
  1. RISPERIDONE. [Interacting]
     Active Substance: RISPERIDONE
     Indication: PSYCHOTIC DISORDER
     Route: 065
  2. HALOPERIDOL. [Interacting]
     Active Substance: HALOPERIDOL
     Indication: PSYCHOTIC DISORDER
     Route: 065
  3. QUETIAPINE. [Suspect]
     Active Substance: QUETIAPINE
     Indication: PSYCHOTIC DISORDER
     Route: 065
  4. CABERGOLINE. [Interacting]
     Active Substance: CABERGOLINE
     Indication: PROLACTIN-PRODUCING PITUITARY TUMOUR
     Dosage: 5 MILLIGRAM, QW
     Route: 065

REACTIONS (2)
  - Drug interaction [Unknown]
  - Drug ineffective [Unknown]
